FAERS Safety Report 5247394-5 (Version None)
Quarter: 2007Q1

REPORT INFORMATION
  Report Type: 
  Country: None (occurrence: None)
  Receive Date: 20070223
  Receipt Date: 20070223
  Transmission Date: 20070707
  Serious: Yes (Hospitalization)
  Sender: FDA-Public Use
  Company Number: None

PATIENT
  Sex: Male
  Weight: 103 kg

DRUGS (5)
  1. DOXORUBICIN HYDROCHLORIDE [Suspect]
     Dosage: 165 MG
  2. METHOTREXATE [Suspect]
     Dosage: 15 MG
  3. DEXAMETHASONE [Suspect]
     Dosage: 308 MG
  4. PEG-L-ASPARAGINASE (K-H) [Suspect]
     Dosage: 5000 IU
  5. VINCRISTINE SULFATE [Suspect]
     Dosage: 6 MG

REACTIONS (8)
  - FEBRILE NEUTROPENIA [None]
  - INFECTION [None]
  - MENINGITIS [None]
  - NO THERAPEUTIC RESPONSE [None]
  - PULMONARY MYCOSIS [None]
  - REFUSAL OF TREATMENT BY RELATIVE [None]
  - RESPIRATORY DISTRESS [None]
  - SINUSITIS FUNGAL [None]
